FAERS Safety Report 12872820 (Version 2)
Quarter: 2016Q4

REPORT INFORMATION
  Report Type: Spontaneous
  Country: ES (occurrence: ES)
  Receive Date: 20161021
  Receipt Date: 20161026
  Transmission Date: 20170207
  Serious: Yes (Other)
  Sender: FDA-Public Use
  Company Number: ES-ASTRAZENECA-2016SF09453

PATIENT
  Age: 66 Year
  Sex: Male
  Weight: 50 kg

DRUGS (19)
  1. ELECOR [Concomitant]
     Active Substance: EPLERENONE
     Indication: ATRIAL FIBRILLATION
     Route: 048
     Dates: start: 20150512
  2. TAMSULOSIN [Concomitant]
     Active Substance: TAMSULOSIN
     Indication: BENIGN PROSTATIC HYPERPLASIA
     Route: 048
     Dates: start: 20150512
  3. COROPRES [Concomitant]
     Active Substance: CARVEDILOL
     Indication: ATRIAL FIBRILLATION
     Route: 048
     Dates: start: 20150512
  4. OMEPRAZOL [Concomitant]
     Active Substance: OMEPRAZOLE
     Indication: MALNUTRITION
     Route: 048
     Dates: start: 20150512
  5. FORTIMEL [Concomitant]
     Active Substance: DIETARY SUPPLEMENT
     Indication: MALNUTRITION
  6. BRILIQUE [Suspect]
     Active Substance: TICAGRELOR
     Indication: ATRIAL FIBRILLATION
     Route: 048
     Dates: start: 20150512
  7. CLORAZEPATE [Concomitant]
     Active Substance: CLORAZEPATE DIPOTASSIUM
     Indication: INSOMNIA
     Route: 048
     Dates: start: 20150512
  8. ELECOR [Concomitant]
     Active Substance: EPLERENONE
     Indication: ACUTE MYOCARDIAL INFARCTION
     Route: 048
     Dates: start: 20150512
  9. OMEPRAZOL [Concomitant]
     Active Substance: OMEPRAZOLE
     Indication: GASTRITIS PROPHYLAXIS
     Route: 048
     Dates: start: 20150512
  10. COROPRES [Concomitant]
     Active Substance: CARVEDILOL
     Indication: ACUTE MYOCARDIAL INFARCTION
     Route: 048
     Dates: start: 20150512
  11. BRILIQUE [Suspect]
     Active Substance: TICAGRELOR
     Indication: ACUTE MYOCARDIAL INFARCTION
     Route: 048
     Dates: start: 20150512
  12. ELECOR [Concomitant]
     Active Substance: EPLERENONE
     Indication: ISCHAEMIC CARDIOMYOPATHY
     Route: 048
     Dates: start: 20150512
  13. BRILIQUE [Suspect]
     Active Substance: TICAGRELOR
     Indication: ISCHAEMIC CARDIOMYOPATHY
     Route: 048
     Dates: start: 20150512
  14. ACETYLSALICYLIC ACID [Concomitant]
     Active Substance: ASPIRIN
     Indication: MYOCARDIAL ISCHAEMIA
     Route: 048
     Dates: start: 20150512
  15. ATORVASTATIN [Concomitant]
     Active Substance: ATORVASTATIN
     Indication: ACUTE MYOCARDIAL INFARCTION
     Route: 048
     Dates: start: 20150512
  16. ATORVASTATIN [Concomitant]
     Active Substance: ATORVASTATIN
     Indication: ATRIAL FIBRILLATION
     Route: 048
     Dates: start: 20150512
  17. ATORVASTATIN [Concomitant]
     Active Substance: ATORVASTATIN
     Indication: ISCHAEMIC CARDIOMYOPATHY
     Route: 048
     Dates: start: 20150512
  18. ACETYLSALICYLIC ACID [Concomitant]
     Active Substance: ASPIRIN
     Indication: ATRIAL FIBRILLATION
     Route: 048
     Dates: start: 20150512
  19. COROPRES [Concomitant]
     Active Substance: CARVEDILOL
     Indication: ISCHAEMIC CARDIOMYOPATHY
     Route: 048
     Dates: start: 20150512

REACTIONS (2)
  - Condition aggravated [Not Recovered/Not Resolved]
  - Benign prostatic hyperplasia [Not Recovered/Not Resolved]

NARRATIVE: CASE EVENT DATE: 20150917
